FAERS Safety Report 7996267-3 (Version None)
Quarter: 2011Q4

REPORT INFORMATION
  Report Type: 
  Country: None (occurrence: None)
  Receive Date: 20111220
  Receipt Date: 20111214
  Transmission Date: 20120403
  Serious: Yes (Other)
  Sender: FDA-Public Use
  Company Number: CN-PFIZER INC-2011290295

PATIENT
  Age: 29 Year
  Sex: Female

DRUGS (1)
  1. METHYLPREDNISOLONE SODIUM SUCCINATE [Suspect]
     Indication: KIDNEY TRANSPLANT REJECTION
     Dosage: 0.5 G IN 100 ML OF 0.9% SODIUM CHLORIDE INJECTION
     Route: 042

REACTIONS (6)
  - RESTLESSNESS [None]
  - CONFUSIONAL STATE [None]
  - SUICIDE ATTEMPT [None]
  - ABDOMINAL DISTENSION [None]
  - MANIA [None]
  - ABDOMINAL PAIN [None]
